FAERS Safety Report 24445134 (Version 6)
Quarter: 2025Q1

REPORT INFORMATION
  Report Type: Report from Study
  Country: US (occurrence: US)
  Receive Date: 20241016
  Receipt Date: 20250306
  Transmission Date: 20250408
  Serious: Yes (Disabling, Other)
  Sender: JAZZ
  Company Number: US-JAZZ PHARMACEUTICALS-2024-US-015260

PATIENT
  Age: 7 Year
  Sex: Male

DRUGS (4)
  1. EPIDIOLEX [Suspect]
     Active Substance: CANNABIDIOL
     Indication: Lennox-Gastaut syndrome
     Dosage: 1.5 MILLILITER, BID
     Route: 048
     Dates: start: 20240830
  2. EPIDIOLEX [Suspect]
     Active Substance: CANNABIDIOL
     Dosage: 2 MILLILITER, BID
     Route: 048
  3. EPIDIOLEX [Suspect]
     Active Substance: CANNABIDIOL
     Dosage: UNK, BID
     Route: 048
     Dates: start: 20240830, end: 20240929
  4. EPIDIOLEX [Suspect]
     Active Substance: CANNABIDIOL
     Dosage: 2.2 MILLILITER, BID
     Route: 048

REACTIONS (11)
  - Seizure [Unknown]
  - Product administration interrupted [Unknown]
  - Seizure [Not Recovered/Not Resolved]
  - Seizure cluster [Recovered/Resolved]
  - Seizure cluster [Recovered/Resolved]
  - Seizure cluster [Recovered/Resolved]
  - Seizure cluster [Recovering/Resolving]
  - Oxygen saturation decreased [Unknown]
  - Anger [Not Recovered/Not Resolved]
  - Unevaluable event [Not Recovered/Not Resolved]
  - Incorrect dose administered [Unknown]

NARRATIVE: CASE EVENT DATE: 20240916
